FAERS Safety Report 12808117 (Version 2)
Quarter: 2016Q4

REPORT INFORMATION
  Report Type: Spontaneous
  Country: US (occurrence: US)
  Receive Date: 20161004
  Receipt Date: 20161122
  Transmission Date: 20170207
  Serious: No
  Sender: FDA-Public Use
  Company Number: US-PFIZER INC-2016457267

PATIENT
  Age: 33 Year
  Sex: Female

DRUGS (1)
  1. MARCAINE [Suspect]
     Active Substance: BUPIVACAINE HYDROCHLORIDE
     Indication: SPINAL ANAESTHESIA
     Dosage: UNK (BUPIVACAINE HCI 7.5MG IN DEXTROSE 82.5MG), 2ML UNI-AMPUL, UNIT DOSE PAK)
     Route: 037

REACTIONS (1)
  - Drug ineffective [Recovered/Resolved]
